FAERS Safety Report 6204609-4 (Version None)
Quarter: 2009Q2

REPORT INFORMATION
  Report Type: 
  Country: None (occurrence: None)
  Receive Date: 20090527
  Receipt Date: 20090514
  Transmission Date: 20091009
  Serious: Yes (Other)
  Sender: FDA-Public Use
  Company Number: ZA-PFIZER INC-2009214164

PATIENT

DRUGS (1)
  1. ZITHROMAX [Suspect]
     Dosage: 2 G, SINGLE
     Route: 048
     Dates: start: 20090514, end: 20090514

REACTIONS (3)
  - FEELING HOT [None]
  - LOSS OF CONSCIOUSNESS [None]
  - NAUSEA [None]
